FAERS Safety Report 8231586-7 (Version None)
Quarter: 2012Q1

REPORT INFORMATION
  Report Type: 
  Country: None (occurrence: None)
  Receive Date: 20120323
  Receipt Date: 20120308
  Transmission Date: 20120608
  Serious: Yes (Other)
  Sender: FDA-Public Use
  Company Number: US-AMGEN-USASP2011068943

PATIENT
  Sex: Female

DRUGS (18)
  1. FLEXERIL [Concomitant]
     Dosage: 10 MG, TID
  2. CALCIUM CARBONATE [Concomitant]
     Dosage: UNK UNK, BID
  3. LISINOPRIL AND HYDROCHLOROTHIAZIDE [Concomitant]
     Dosage: UNK UNK, QD
  4. VITAMIN D [Concomitant]
     Dosage: 50000 IU, Q2MO
  5. ZOCOR [Concomitant]
     Dosage: 20 MG, QD
  6. DEXILANT [Concomitant]
     Dosage: 60 MG, QD
  7. SEPTRA [Concomitant]
     Dosage: UNK UNK, BID
  8. VERAPAMIL [Concomitant]
     Dosage: 240 MG, QD
  9. PROLEX D [Concomitant]
     Dosage: 5 MG, QD
  10. LISINOPRIL [Concomitant]
     Dosage: 5 MG, QD
  11. PROLIA [Suspect]
     Indication: OSTEOPOROSIS POSTMENOPAUSAL
     Dosage: 60 MG, Q6MO
     Dates: start: 20111102
  12. ACTONEL [Concomitant]
     Dosage: UNK UNK, QMO
  13. SYNTHROID [Concomitant]
     Dosage: 150 MUG, QD
  14. COLCHICINE [Concomitant]
     Dosage: 0.6 MG, PRN
  15. PREVACID [Concomitant]
     Dosage: 30 MG, QD
  16. LASIX [Concomitant]
     Dosage: 40 MG, QD
  17. POTASSIUM [Concomitant]
     Dosage: UNK UNK, QD
  18. ALLOPURINOL [Concomitant]
     Dosage: 100 MG, QD

REACTIONS (3)
  - COLD SWEAT [None]
  - PAIN [None]
  - HYPOCALCAEMIA [None]
